FAERS Safety Report 5020886-X (Version None)
Quarter: 2006Q2

REPORT INFORMATION
  Report Type: 
  Country: None (occurrence: None)
  Receive Date: 20060608
  Receipt Date: 20060601
  Transmission Date: 20061013
  Serious: Yes (Other)
  Sender: FDA-Public Use
  Company Number: PHEH2006US07226

PATIENT
  Age: 18 Year
  Sex: Female
  Weight: 49.4 kg

DRUGS (1)
  1. DESFERAL [Suspect]

REACTIONS (2)
  - RASH GENERALISED [None]
  - RESTRICTIVE PULMONARY DISEASE [None]
